FAERS Safety Report 13980001 (Version 3)
Quarter: 2019Q1

REPORT INFORMATION
  Report Type: Report from Study
  Country: US (occurrence: US)
  Receive Date: 20170914
  Receipt Date: 20190118
  Transmission Date: 20190417
  Serious: Yes (Other)
  Sender: FDA-Public Use
  Company Number: US-ASTELLAS-2017US026925

PATIENT
  Sex: Male

DRUGS (1)
  1. ENZALUTAMIDE [Suspect]
     Active Substance: ENZALUTAMIDE
     Indication: PROSTATE CANCER
     Route: 048
     Dates: start: 20170406, end: 20190116

REACTIONS (5)
  - Hot flush [Unknown]
  - Malignant neoplasm progression [Unknown]
  - Fatigue [Unknown]
  - Drug ineffective [Unknown]
  - Bone cancer [Unknown]
